FAERS Safety Report 4905411-3 (Version None)
Quarter: 2006Q1

REPORT INFORMATION
  Report Type: 
  Country: None (occurrence: None)
  Receive Date: 20060207
  Receipt Date: 20060207
  Transmission Date: 20060701
  Serious: Yes (Hospitalization)
  Sender: FDA-Public Use
  Company Number: None

PATIENT
  Age: 57 Year
  Sex: Female
  Weight: 65.7716 kg

DRUGS (14)
  1. XYREM [Suspect]
     Indication: FIBROMYALGIA
     Dosage: 3GM TWICE A NIGHT PO
     Route: 048
     Dates: start: 20051223, end: 20060114
  2. XYREM [Suspect]
     Indication: SLEEP DISORDER
     Dosage: 3GM TWICE A NIGHT PO
     Route: 048
     Dates: start: 20051223, end: 20060114
  3. KLONOPIN [Concomitant]
  4. PROVIGIL [Concomitant]
  5. NEURONTIN [Concomitant]
  6. LEVOXYL [Concomitant]
  7. EFFEXOR XR [Concomitant]
  8. DOXYCYCLINE [Concomitant]
  9. NASONEX [Concomitant]
  10. MULTI-VITAMIN [Concomitant]
  11. MOBIC [Concomitant]
  12. ULTRAM [Concomitant]
  13. CLARINEX [Concomitant]
  14. PROTONIX [Concomitant]

REACTIONS (8)
  - AMNESIA [None]
  - CONFUSIONAL STATE [None]
  - DIZZINESS [None]
  - DRUG DOSE OMISSION [None]
  - HYPOMANIA [None]
  - NAUSEA [None]
  - PARANOIA [None]
  - VOMITING [None]
